FAERS Safety Report 8723614 (Version 3)
Quarter: 2012Q4

REPORT INFORMATION
  Report Type: 
  Country: JP (occurrence: JP)
  Receive Date: 20120815
  Receipt Date: 20121228
  Transmission Date: 20130627
  Serious: Yes (Other)
  Sender: FDA-Public Use
  Company Number: JP-009507513-1208JPN004851

PATIENT
  Age: 64 Year
  Sex: Female
  Weight: 61 kg

DRUGS (12)
  1. REBETOL [Suspect]
     Indication: CHRONIC HEPATITIS C
     Dosage: 400 mg, qd
     Route: 048
     Dates: start: 20120605, end: 20120624
  2. REBETOL [Suspect]
     Dosage: 200 mg, qd
     Route: 048
     Dates: start: 20120625, end: 20121008
  3. REBETOL [Suspect]
     Dosage: 400 mg, UNK
     Route: 048
     Dates: start: 20121009, end: 20121114
  4. PEGINTRON [Suspect]
     Indication: CHRONIC HEPATITIS C
     Dosage: 1.0 Microgram per kilogram, qw
     Route: 058
     Dates: start: 20120605, end: 20120618
  5. PEGINTRON [Suspect]
     Dosage: 0.7 Microgram per kilogram, qw
     Route: 058
     Dates: start: 20120625, end: 20120625
  6. PEGINTRON [Suspect]
     Dosage: 0.8 UNK, UNK
     Route: 058
     Dates: start: 20120702, end: 20121114
  7. TELAVIC [Suspect]
     Indication: CHRONIC HEPATITIS C
     Dosage: 1500 mg, qd
     Route: 048
     Dates: start: 20120605, end: 20120827
  8. FEROTYM [Concomitant]
     Indication: IRON DEFICIENCY ANAEMIA
     Dosage: 100 mg, UNK
     Route: 048
  9. EPADEL S [Concomitant]
     Indication: HYPERLIPIDAEMIA
     Dosage: 1800 mg, qd
     Route: 048
  10. CLARITIN REDITABS [Concomitant]
     Indication: PROPHYLAXIS
     Dosage: 10 mg, qd
     Route: 048
  11. PARIET [Concomitant]
     Indication: GASTROOESOPHAGEAL REFLUX DISEASE
     Dosage: 10 mg, qd
     Route: 048
  12. MAGLAX (MAGNESIUM OXIDE) [Concomitant]
     Indication: CONSTIPATION
     Dosage: 1980 mg, qd
     Route: 048

REACTIONS (6)
  - Anaemia [Not Recovered/Not Resolved]
  - Platelet count decreased [Not Recovered/Not Resolved]
  - Rash [Recovering/Resolving]
  - Anaemia [Not Recovered/Not Resolved]
  - Platelet count decreased [Not Recovered/Not Resolved]
  - Anaemia [Not Recovered/Not Resolved]
